FAERS Safety Report 26089869 (Version 2)
Quarter: 2025Q4

REPORT INFORMATION
  Report Type: Report from Study
  Country: US (occurrence: US)
  Receive Date: 20251125
  Receipt Date: 20251212
  Transmission Date: 20260118
  Serious: No
  Sender: JAZZ
  Company Number: US-JAZZ PHARMACEUTICALS-2025-US-027066

PATIENT
  Sex: Female

DRUGS (1)
  1. EPIDIOLEX [Suspect]
     Active Substance: CANNABIDIOL
     Indication: Idiopathic generalised epilepsy
     Dosage: TAKE 0.5 MILLILITRES TWICE A DAY FOR 1 WEEK, THEN 1 MILLILITRE TWICE A DAY FOR 1 WEEK, THEN 1.5 MILLILITRES TWICE A DAY FOR 1 WEEK, AND THEN 2 MILLILITRES TWICE A DAY

REACTIONS (1)
  - Off label use [Unknown]
